FAERS Safety Report 13191258 (Version 1)
Quarter: 2017Q1

REPORT INFORMATION
  Report Type: Spontaneous
  Country: US (occurrence: US)
  Receive Date: 20170207
  Receipt Date: 20170207
  Transmission Date: 20170428
  Serious: No
  Sender: FDA-Public Use
  Company Number: US-JNJFOC-20170123206

PATIENT
  Age: 8 Decade
  Sex: Female

DRUGS (2)
  1. ZYRTEC 10MG IR TABLET [Suspect]
     Active Substance: CETIRIZINE HYDROCHLORIDE
     Indication: MIDDLE EAR EFFUSION
     Route: 048
     Dates: start: 20170124
  2. ZYRTEC 10MG IR TABLET [Suspect]
     Active Substance: CETIRIZINE HYDROCHLORIDE
     Indication: MIDDLE EAR EFFUSION
     Dosage: BASIC DOSE
     Route: 048
     Dates: start: 20160601

REACTIONS (2)
  - Product use issue [Unknown]
  - Accidental exposure to product [Unknown]

NARRATIVE: CASE EVENT DATE: 20160601
